FAERS Safety Report 7763373-8 (Version None)
Quarter: 2011Q3

REPORT INFORMATION
  Report Type: 
  Country: None (occurrence: None)
  Receive Date: 20110920
  Receipt Date: 20110915
  Transmission Date: 20111222
  Serious: Yes (Hospitalization, Other)
  Sender: FDA-Public Use
  Company Number: IN-BRISTOL-MYERS SQUIBB COMPANY-14311708

PATIENT
  Age: 27 Year
  Sex: Male

DRUGS (17)
  1. RANITIDINE [Concomitant]
     Route: 042
     Dates: start: 20070411, end: 20081114
  2. CLOTRIMAZOLE [Concomitant]
     Dates: start: 20070411
  3. ATENOLOL [Concomitant]
     Indication: HYPERTENSION
     Dosage: DOSAGE FORM = 1.5 TAB. REDUCED TO 1 TAB 20-AUG-2008
     Dates: start: 20071023
  4. GEMFIBROZIL [Concomitant]
     Dosage: TAKEN ON 18-JUN-2007
     Route: 048
     Dates: start: 20070622
  5. RAMIPRIL [Concomitant]
     Indication: HYPERTENSION
     Route: 048
     Dates: start: 20070817
  6. ATORVASTATIN [Concomitant]
     Dates: start: 20080418
  7. FOSAMAX [Concomitant]
     Route: 048
     Dates: start: 20070518
  8. BELATACEPT [Suspect]
     Indication: RENAL TRANSPLANT
     Dosage: NO. OF COURSES 23.
     Route: 042
     Dates: start: 20070410, end: 20080726
  9. PREDNISOLONE [Suspect]
     Indication: RENAL TRANSPLANT
     Dosage: FORMULATION:TABLET. STOPPED 26AUG2008, AS OF 16SEP2009 ON PREDNISOLONE THERAPY
     Dates: start: 20070817
  10. METHYLCOBALAMIN [Concomitant]
     Route: 048
     Dates: start: 20070727
  11. EZETIMIBE [Concomitant]
     Dosage: TAKEN ON 18-JUN-2007
     Route: 048
     Dates: start: 20070622
  12. FENOFIBRATE [Concomitant]
     Dates: start: 20080418
  13. TRAMADOL HCL [Concomitant]
     Route: 048
     Dates: start: 20080903
  14. AMLODIPINE [Concomitant]
     Indication: HYPERTENSION
     Dosage: DOSAGE FORM = 1.5 TAB. REDUCED TO 1 TAB 20-AUG-2008
     Dates: start: 20071023
  15. MECOBALAMIN [Concomitant]
     Dates: start: 20070727
  16. MYCOPHENOLATE MOFETIL [Suspect]
     Indication: RENAL TRANSPLANT
     Dosage: TAB DOSE REDUCED:1G ON 21AUG08 STOPED:2SEP08; TAKEN ORALLY TAKEN 250MG 2/D 500MG FROM 3SEP08
     Dates: start: 20070409
  17. ACETYLSALICYLIC ACID SRT [Concomitant]
     Dates: start: 20080419

REACTIONS (3)
  - EPSTEIN-BARR VIRUS ASSOCIATED LYMPHOPROLIFERATIVE DISORDER [None]
  - CONVULSION [None]
  - TONGUE BITING [None]
